FAERS Safety Report 14741613 (Version 2)
Quarter: 2018Q2

REPORT INFORMATION
  Report Type: Spontaneous
  Country: US (occurrence: US)
  Receive Date: 20180410
  Receipt Date: 20180501
  Transmission Date: 20180711
  Serious: Yes (Other)
  Sender: FDA-Public Use
  Company Number: US-PFIZER INC-2018141693

PATIENT
  Age: 62 Year
  Sex: Female

DRUGS (2)
  1. PREMARIN [Suspect]
     Active Substance: ESTROGENS, CONJUGATED
     Indication: HYSTERECTOMY
     Dosage: 1.25 MG, 1X/DAY
     Route: 048
     Dates: start: 197601
  2. PREMARIN [Suspect]
     Active Substance: ESTROGENS, CONJUGATED
     Dosage: 1.25 MG, 1X/DAY (AFTER BEING TAKEN OFF FOR SEVERAL YEARS)
     Route: 048
     Dates: start: 2018

REACTIONS (3)
  - Osteoporosis [Not Recovered/Not Resolved]
  - Intentional product misuse [Unknown]
  - Multiple fractures [Unknown]

NARRATIVE: CASE EVENT DATE: 201802
